FAERS Safety Report 13896341 (Version 1)
Quarter: 2017Q3

REPORT INFORMATION
  Report Type: Spontaneous
  Country: CH (occurrence: CH)
  Receive Date: 20170823
  Receipt Date: 20170823
  Transmission Date: 20171127
  Serious: Yes (Hospitalization)
  Sender: FDA-Public Use
  Company Number: CH-LPDUSPRD-20171146

PATIENT
  Age: 29 Year
  Sex: Female

DRUGS (1)
  1. FERINJECT [Suspect]
     Active Substance: FERRIC CARBOXYMALTOSE
     Dosage: 1
     Route: 041
     Dates: start: 20170402, end: 20170402

REACTIONS (7)
  - Hypersensitivity [Unknown]
  - Infusion site joint movement impairment [Recovering/Resolving]
  - Infusion site pain [Recovering/Resolving]
  - Off label use [Unknown]
  - Injection site extravasation [Recovered/Resolved]
  - Infusion site discolouration [Unknown]
  - Infusion site oedema [Recovering/Resolving]

NARRATIVE: CASE EVENT DATE: 20170402
